FAERS Safety Report 21830248 (Version 1)
Quarter: 2023Q1

REPORT INFORMATION
  Report Type: Spontaneous
  Country: US (occurrence: None)
  Receive Date: 20230105
  Receipt Date: 20230105
  Transmission Date: 20230418
  Serious: Yes (Hospitalization)
  Sender: FDA-Public Use
  Company Number: None

PATIENT
  Age: 79 Year
  Sex: Female

DRUGS (1)
  1. CAPECITABINE [Suspect]
     Active Substance: CAPECITABINE
     Indication: Rectal cancer
     Dosage: FREQUENCY : TWICE A DAY;?
     Route: 048
     Dates: start: 202212

REACTIONS (7)
  - Diarrhoea [None]
  - Dehydration [None]
  - SARS-CoV-2 test positive [None]
  - Clostridium difficile infection [None]
  - Drug interaction [None]
  - Glossodynia [None]
  - Glossitis [None]

NARRATIVE: CASE EVENT DATE: 20221218
